FAERS Safety Report 6405037-9 (Version None)
Quarter: 2009Q4

REPORT INFORMATION
  Report Type: 
  Country: None (occurrence: None)
  Receive Date: 20091019
  Receipt Date: 20091008
  Transmission Date: 20100525
  Serious: Yes (Hospitalization)
  Sender: FDA-Public Use
  Company Number: TR-ASTRAZENECA-2009SE19019

PATIENT

DRUGS (3)
  1. CRESTOR [Suspect]
     Route: 048
     Dates: start: 20070101, end: 20070101
  2. ASPIRIN [Concomitant]
  3. BETA BLOCKER [Concomitant]

REACTIONS (1)
  - RENAL FAILURE [None]
